FAERS Safety Report 14262147 (Version 4)
Quarter: 2022Q2

REPORT INFORMATION
  Report Type: Report from Study
  Country: ES (occurrence: None)
  Receive Date: 20171208
  Receipt Date: 20220408
  Transmission Date: 20220721
  Serious: Yes (Hospitalization, Other)
  Sender: FDA-Public Use
  Company Number: 2017SF24184

PATIENT
  Age: 78 Year
  Sex: Male

DRUGS (3)
  1. QUETIAPINE [Suspect]
     Active Substance: QUETIAPINE
     Indication: Psychomotor hyperactivity
     Route: 048
     Dates: start: 20170928, end: 20171003
  2. ERTAPENEM [Suspect]
     Active Substance: ERTAPENEM
     Indication: Pyrexia
     Route: 042
     Dates: start: 20170929, end: 20171002
  3. ERTAPENEM [Suspect]
     Active Substance: ERTAPENEM
     Indication: Urinary tract infection
     Route: 042
     Dates: start: 20170929, end: 20171002

REACTIONS (2)
  - Encephalopathy [Recovered/Resolved]
  - Off label use [Unknown]

NARRATIVE: CASE EVENT DATE: 20171002
